FAERS Safety Report 9757506 (Version 2)
Quarter: 2013Q4

REPORT INFORMATION
  Report Type: Spontaneous
  Country: BR (occurrence: BR)
  Receive Date: 20131216
  Receipt Date: 20131216
  Transmission Date: 20140711
  Serious: Yes (Other)
  Sender: FDA-Public Use
  Company Number: BR-AMGEN-BRASP2012014528

PATIENT
  Age: 60 Year
  Sex: Female
  Weight: 89 kg

DRUGS (8)
  1. ENBREL [Suspect]
     Indication: RHEUMATOID ARTHRITIS
     Dosage: 50 MG, 1X/WEEK
     Route: 058
     Dates: start: 201201, end: 201308
  2. METICORTEN [Concomitant]
     Dosage: 15 MG, UNK
  3. LOSARTAN [Concomitant]
     Indication: HYPERTENSION
     Dosage: 2  TABLETS OF 50MG (100 MG), DAILY
  4. AMLODIPINE [Concomitant]
     Indication: HYPERTENSION
     Dosage: 2 TABLETS OF 20MG (40 MG), DAILY
  5. SIMVASTATIN [Concomitant]
     Indication: BLOOD CHOLESTEROL ABNORMAL
     Dosage: 2 TABLETS OF 20MG (40 MG), DAILY
  6. OMEPRAZOL                          /00661201/ [Concomitant]
     Dosage: 20 MG, UNK
  7. NIFEDIPINE [Concomitant]
     Dosage: UNK
  8. AAS [Concomitant]
     Dosage: UNK

REACTIONS (14)
  - Pain [Unknown]
  - Hypertension [Unknown]
  - Epistaxis [Unknown]
  - Osteoarthritis [Unknown]
  - Exostosis [Unknown]
  - Spinal disorder [Unknown]
  - Osteoporosis [Unknown]
  - Mobility decreased [Unknown]
  - Injection site pain [Unknown]
  - Injection site warmth [Unknown]
  - Arthralgia [Not Recovered/Not Resolved]
  - Blister [Unknown]
  - Injection site erythema [Unknown]
  - Injection site induration [Unknown]
